FAERS Safety Report 14504491 (Version 1)
Quarter: 2018Q1

REPORT INFORMATION
  Report Type: Spontaneous
  Country: US (occurrence: US)
  Receive Date: 20180208
  Receipt Date: 20180208
  Transmission Date: 20180509
  Serious: No
  Sender: FDA-Public Use
  Company Number: US-JNJFOC-20171232032

PATIENT
  Sex: Male

DRUGS (6)
  1. SUDAFED [Concomitant]
     Active Substance: PSEUDOEPHEDRINE HYDROCHLORIDE
     Indication: PAIN
     Dosage: EVERY FOUR HOURS
     Route: 065
  2. TYLENOL EXTRA STRENGTH [Suspect]
     Active Substance: ACETAMINOPHEN
     Indication: PAIN
     Dosage: TAKING A TOTAL OF 6 CAPLETS A DAY
     Route: 065
  3. SUDAFED [Concomitant]
     Active Substance: PSEUDOEPHEDRINE HYDROCHLORIDE
     Indication: OROPHARYNGEAL PAIN
     Dosage: EVERY FOUR HOURS
     Route: 065
  4. THERAFLU NIGHT TIME [Concomitant]
     Indication: OROPHARYNGEAL PAIN
     Route: 065
  5. THERAFLU NIGHT TIME [Concomitant]
     Indication: PAIN
     Route: 065
  6. TYLENOL EXTRA STRENGTH [Suspect]
     Active Substance: ACETAMINOPHEN
     Indication: OROPHARYNGEAL PAIN
     Dosage: TAKING A TOTAL OF 6 CAPLETS A DAY
     Route: 065

REACTIONS (3)
  - Inappropriate schedule of drug administration [Unknown]
  - Drug administration error [Unknown]
  - Incorrect dose administered [Unknown]
